FAERS Safety Report 4406344-1 (Version None)
Quarter: 2004Q3

REPORT INFORMATION
  Report Type: 
  Country: None (occurrence: None)
  Receive Date: 20040723
  Receipt Date: 20030626
  Transmission Date: 20050211
  Serious: No
  Sender: FDA-Public Use
  Company Number: US-GLAXOSMITHKLINE-A0414048A

PATIENT
  Age: 67 Year
  Sex: Female

DRUGS (5)
  1. AVANDIA [Suspect]
     Dosage: 8MG PER DAY
     Route: 048
     Dates: start: 20030625
  2. LIPITOR [Concomitant]
  3. ZETIA [Concomitant]
     Indication: BLOOD CHOLESTEROL INCREASED
  4. ALTACE [Concomitant]
     Dates: start: 20030401
  5. GLUCOPHAGE [Concomitant]
     Dosage: 1000MG TWICE PER DAY
     Dates: start: 20030625

REACTIONS (1)
  - NAUSEA [None]
